FAERS Safety Report 5481030-8 (Version None)
Quarter: 2007Q4

REPORT INFORMATION
  Report Type: 
  Country: None (occurrence: None)
  Receive Date: 20071004
  Receipt Date: 20070925
  Transmission Date: 20080405
  Serious: Yes (Life-Threatening, Hospitalization)
  Sender: FDA-Public Use
  Company Number: AU-1164089

PATIENT
  Age: 85 Year
  Sex: Female

DRUGS (13)
  1. TRAVATAN [Suspect]
     Indication: GLAUCOMA
     Dosage: 1 GTT OU OPHTHALMIC
     Route: 047
     Dates: start: 20070625, end: 20070719
  2. ENALAPRIL MALEATE [Concomitant]
  3. LOSEC           (OMEPRAZOLE MAGNESIUM) [Concomitant]
  4. ATROVENT [Concomitant]
  5. DILTIAZEM HYDROCHLORIDE [Concomitant]
  6. FOSAMAX [Concomitant]
  7. GLUCOSAMINE           (GLUCOSAMINE) [Concomitant]
  8. LASIX [Concomitant]
  9. PANAMAX      (PARACETAMOL) [Concomitant]
  10. SERETIN             (SERETIN) [Concomitant]
  11. SIMVASTATIN [Concomitant]
  12. VENTOLIN          (SALBUTAMOL SULFATE) [Concomitant]
  13. ZOLOFT [Concomitant]

REACTIONS (1)
  - HYPERSENSITIVITY [None]
